FAERS Safety Report 10312122 (Version 1)
Quarter: 2014Q3

REPORT INFORMATION
  Report Type: Spontaneous
  Country: US (occurrence: US)
  Receive Date: 20140717
  Receipt Date: 20140717
  Transmission Date: 20150326
  Serious: Yes (Other)
  Sender: FDA-Public Use
  Company Number: US-TEVA-494565USA

PATIENT
  Sex: Female

DRUGS (2)
  1. ACTIQ [Suspect]
     Active Substance: FENTANYL CITRATE
  2. FENTORA [Suspect]
     Active Substance: FENTANYL CITRATE
     Indication: MYASTHENIA GRAVIS

REACTIONS (2)
  - Hip fracture [Not Recovered/Not Resolved]
  - Off label use [Not Recovered/Not Resolved]
